FAERS Safety Report 25091965 (Version 2)
Quarter: 2025Q2

REPORT INFORMATION
  Report Type: Spontaneous
  Country: JP (occurrence: JP)
  Receive Date: 20250318
  Receipt Date: 20250529
  Transmission Date: 20250716
  Serious: Yes (Disabling, Other)
  Sender: NOVARTIS
  Company Number: JP-002147023-NVSJ2025JP003274

PATIENT
  Age: 75 Year
  Sex: Male

DRUGS (1)
  1. BEOVU [Suspect]
     Active Substance: BROLUCIZUMAB-DBLL
     Indication: Age-related macular degeneration
     Route: 031
     Dates: start: 20250204, end: 20250204

REACTIONS (5)
  - Retinal perivascular sheathing [Not Recovered/Not Resolved]
  - Keratic precipitates [Recovered/Resolved]
  - Eye inflammation [Recovered/Resolved]
  - Visual impairment [Unknown]
  - Vitreous opacities [Recovered/Resolved]

NARRATIVE: CASE EVENT DATE: 20250312
